FAERS Safety Report 4439735-3 (Version None)
Quarter: 2004Q3

REPORT INFORMATION
  Report Type: 
  Country: None (occurrence: None)
  Receive Date: 20040901
  Receipt Date: 20040901
  Transmission Date: 20050211
  Serious: Yes (Life-Threatening, Hospitalization, Disabling)
  Sender: FDA-Public Use
  Company Number: None

PATIENT
  Age: 57 Year
  Sex: Female
  Weight: 54.4316 kg

DRUGS (3)
  1. ENBREL [Suspect]
     Indication: ANKYLOSING SPONDYLITIS
     Dosage: 2 INJECT WEEKLY
     Dates: start: 20030601, end: 20040420
  2. ENBREL [Suspect]
     Indication: RHEUMATOID ARTHRITIS
     Dosage: 2 INJECT WEEKLY
     Dates: start: 20030601, end: 20040420
  3. PLASMAPHERESIS [Concomitant]

REACTIONS (3)
  - BLOOD LACTATE DEHYDROGENASE INCREASED [None]
  - NEUROLOGICAL SYMPTOM [None]
  - THROMBOTIC THROMBOCYTOPENIC PURPURA [None]
